FAERS Safety Report 7141794-4 (Version None)
Quarter: 2010Q4

REPORT INFORMATION
  Report Type: 
  Country: None (occurrence: None)
  Receive Date: 20101112
  Receipt Date: 20100901
  Transmission Date: 20110411
  Serious: No
  Sender: FDA-Public Use
  Company Number: 1000016058

PATIENT
  Age: 65 Year
  Sex: Female

DRUGS (13)
  1. SAVELLA [Suspect]
     Indication: FIBROMYALGIA
     Dosage: 100 MG (50 MG,2 IN 1 D),ORAL ; 200 MG (100 MG,2 IN 1 D),ORAL
     Route: 048
     Dates: start: 20100101, end: 20100701
  2. SAVELLA [Suspect]
     Indication: FIBROMYALGIA
     Dosage: 100 MG (50 MG,2 IN 1 D),ORAL ; 200 MG (100 MG,2 IN 1 D),ORAL
     Route: 048
     Dates: start: 20100701
  3. TOPAMAX [Concomitant]
  4. LEVOTHYROXINE [Concomitant]
  5. CELEXA [Concomitant]
  6. SIMVASTATIN [Concomitant]
  7. CELEBREX [Concomitant]
  8. ATENOLOL [Concomitant]
  9. FLEXERIL [Concomitant]
  10. LORAZEPAM [Concomitant]
  11. BENADRYL [Concomitant]
  12. PRILOSEC [Concomitant]
  13. ACYCLOVIR [Concomitant]

REACTIONS (6)
  - BLISTER [None]
  - DRY MOUTH [None]
  - DYSPHAGIA [None]
  - EYE IRRITATION [None]
  - NAUSEA [None]
  - RASH [None]
